FAERS Safety Report 7898757-0 (Version None)
Quarter: 2011Q4

REPORT INFORMATION
  Report Type: 
  Country: None (occurrence: None)
  Receive Date: 20111107
  Receipt Date: 20110126
  Transmission Date: 20120403
  Serious: No
  Sender: FDA-Public Use
  Company Number: US-ABBOTT-11P-163-0701341-00

PATIENT
  Age: 30 Year
  Sex: Female
  Weight: 63.56 kg

DRUGS (6)
  1. CLONAZEPAM [Concomitant]
     Indication: ANXIETY
     Dosage: PRN ONCE WEEKLY
  2. TRICOR [Suspect]
     Indication: BLOOD CHOLESTEROL INCREASED
     Dosage: AT HOUR OF SLEEP
     Route: 048
     Dates: start: 20100801, end: 20100901
  3. TRICOR [Suspect]
     Dosage: AT HOUR OF SLEEP
     Route: 048
     Dates: start: 20101001
  4. TRICOR [Suspect]
     Indication: BLOOD TRIGLYCERIDES INCREASED
     Dosage: INSTRUCTED TO TAKE HALF DOSE BY MD.
     Route: 048
     Dates: start: 20100901, end: 20101001
  5. VITAMIN B-12 [Concomitant]
     Indication: VITAMIN B12 DEFICIENCY
     Route: 060
  6. VITAMIN D [Concomitant]
     Indication: PRODUCT USED FOR UNKNOWN INDICATION

REACTIONS (5)
  - COELIAC DISEASE [None]
  - ABDOMINAL DISCOMFORT [None]
  - MYALGIA [None]
  - FATIGUE [None]
  - ARTHRALGIA [None]
